FAERS Safety Report 5641698-X (Version None)
Quarter: 2008Q1

REPORT INFORMATION
  Report Type: 
  Country: None (occurrence: None)
  Receive Date: 20080225
  Receipt Date: 20080207
  Transmission Date: 20080703
  Serious: Yes (Life-Threatening, Hospitalization)
  Sender: FDA-Public Use
  Company Number: 2007S1013063

PATIENT
  Age: 68 Year
  Sex: Female
  Weight: 60 kg

DRUGS (12)
  1. ATENOLOL [Suspect]
     Indication: HYPERTENSION
     Dosage: 100 MG; DAILY; ORAL
     Route: 048
     Dates: end: 20071024
  2. CO-AMILOFRUSE (FRUMIL) [Suspect]
     Dosage: 1 DF, DAILY, ORAL
     Route: 048
     Dates: end: 20071024
  3. NIFEDIPINE [Suspect]
     Dosage: 90 MG; DAILY; ORAL
     Route: 048
     Dates: end: 20071024
  4. AMITRIPTYLINE HCL [Concomitant]
  5. ASPIRIN [Concomitant]
  6. ATORVASTATIN CALCIUM [Concomitant]
  7. COD LIVER OIL [Concomitant]
  8. CO-PROXAMOL /00016701/ [Concomitant]
  9. GLIBENCLAMIDE [Concomitant]
  10. IBUPROFEN [Concomitant]
  11. INSULATARD /00646001/ [Concomitant]
  12. METFORMIN HCL [Concomitant]

REACTIONS (6)
  - ATRIOVENTRICULAR BLOCK COMPLETE [None]
  - BLOOD GLUCOSE INCREASED [None]
  - BRADYCARDIA [None]
  - HYPOTENSION [None]
  - LACTIC ACIDOSIS [None]
  - MALAISE [None]
